FAERS Safety Report 8633899 (Version 6)
Quarter: 2012Q4

REPORT INFORMATION
  Report Type: 
  Country: JP (occurrence: JP)
  Receive Date: 20120625
  Receipt Date: 20121112
  Transmission Date: 20130627
  Serious: Yes (Life-Threatening)
  Sender: FDA-Public Use
  Company Number: JP-ROCHE-1080207

PATIENT
  Age: 84 Year
  Sex: Male
  Weight: 59 kg

DRUGS (13)
  1. MIRCERA [Suspect]
     Indication: NEPHROGENIC ANAEMIA
     Route: 042
     Dates: start: 20120601
  2. ARTIST [Suspect]
     Indication: CARDIAC FAILURE CONGESTIVE
     Route: 048
     Dates: start: 20100608
  3. LOPERAMIDE HYDROCHLORIDE [Suspect]
     Indication: DIARRHOEA
     Route: 048
     Dates: start: 20120606, end: 20120609
  4. NEOAMIYU [Suspect]
     Indication: PRODUCT USED FOR UNKNOWN INDICATION
     Route: 042
     Dates: start: 201111, end: 20120611
  5. PRECIPITATED CALCIUM CARBONATE [Concomitant]
     Indication: BLOOD PHOSPHORUS INCREASED
     Route: 048
     Dates: start: 20100608, end: 20120611
  6. FOLIAMIN [Concomitant]
     Indication: ANAEMIA
     Route: 048
     Dates: start: 20100608
  7. BAYASPIRIN [Concomitant]
     Indication: PROPHYLAXIS
     Route: 048
     Dates: start: 20100608
  8. THIODERON [Concomitant]
     Indication: ANAEMIA
     Route: 048
     Dates: start: 20100608
  9. ALLOPURINOL [Concomitant]
     Indication: HYPERURICAEMIA
     Route: 048
     Dates: start: 20100608
  10. WARKMIN [Concomitant]
     Indication: VITAMIN D ABNORMAL
     Route: 048
     Dates: start: 20100608
  11. DEPAS [Concomitant]
     Indication: INSOMNIA
     Route: 048
     Dates: start: 20100608
  12. SHAKUYAKU-KANZO-TO [Concomitant]
  13. DAIO-KANZO-TO [Concomitant]

REACTIONS (2)
  - Liver disorder [Recovering/Resolving]
  - Faeces discoloured [Unknown]
